FAERS Safety Report 5229666-3 (Version None)
Quarter: 2007Q1

REPORT INFORMATION
  Report Type: 
  Country: None (occurrence: None)
  Receive Date: 20070201
  Receipt Date: 20041112
  Transmission Date: 20070707
  Serious: Yes (Other)
  Sender: FDA-Public Use
  Company Number: 032-96

PATIENT
  Age: 81 Year
  Sex: Female

DRUGS (1)
  1. TEVETEN [Suspect]
     Indication: DRUG USE FOR UNKNOWN INDICATION
     Dosage: 600 MG QD PO
     Route: 048
     Dates: start: 20040831, end: 20040927

REACTIONS (1)
  - HYPERTENSION [None]
